FAERS Safety Report 24313899 (Version 3)
Quarter: 2024Q4

REPORT INFORMATION
  Report Type: Report from Study
  Country: US (occurrence: US)
  Receive Date: 20240912
  Receipt Date: 20241106
  Transmission Date: 20250114
  Serious: No
  Sender: SUNOVION
  Company Number: US-SUMITOMO PHARMA SWITZERLAND GMBH-2024SPA001701

PATIENT

DRUGS (2)
  1. ORGOVYX [Suspect]
     Active Substance: RELUGOLIX
     Indication: Prostate cancer
     Dosage: 360 MG, SINGLE
     Route: 048
     Dates: start: 20240808, end: 20240808
  2. ORGOVYX [Suspect]
     Active Substance: RELUGOLIX
     Dosage: 120 MG, QD
     Route: 048
     Dates: start: 20240809

REACTIONS (13)
  - Emotional disorder [Unknown]
  - Crying [Unknown]
  - Temperature regulation disorder [Unknown]
  - Irritability [Unknown]
  - Vomiting [Unknown]
  - Hyperacusis [Unknown]
  - Testicular disorder [Unknown]
  - Apathy [Unknown]
  - Asthenia [Unknown]
  - Constipation [Unknown]
  - Hot flush [Unknown]
  - Headache [Unknown]
  - Product dose omission issue [Unknown]
